FAERS Safety Report 7966053-9 (Version None)
Quarter: 2011Q4

REPORT INFORMATION
  Report Type: 
  Country: None (occurrence: None)
  Receive Date: 20111208
  Receipt Date: 20111129
  Transmission Date: 20120403
  Serious: Yes (Other)
  Sender: FDA-Public Use
  Company Number: JP-BAYER-2011-082810

PATIENT
  Age: 79 Year
  Sex: Female

DRUGS (3)
  1. ASPIRIN [Suspect]
     Dosage: DAILY DOSE 100 MG
     Route: 048
     Dates: start: 20110418
  2. ASPIRIN [Suspect]
     Indication: CHEST PAIN
     Dosage: DAILY DOSE 100 MG
     Route: 048
     Dates: start: 20040101, end: 20110331
  3. ASPIRIN [Suspect]
     Indication: CEREBRAL INFARCTION
     Dosage: DAILY DOSE 200 MG
     Route: 048
     Dates: start: 20110401, end: 20110417

REACTIONS (12)
  - HAEMATURIA [None]
  - HYDRONEPHROSIS [None]
  - URINARY TRACT INFECTION [None]
  - SHOCK HAEMORRHAGIC [None]
  - ANAEMIA [None]
  - PYREXIA [None]
  - SEPTIC SHOCK [None]
  - PYELONEPHRITIS ACUTE [None]
  - BLOOD CULTURE POSITIVE [None]
  - BLADDER TAMPONADE [None]
  - DISSEMINATED INTRAVASCULAR COAGULATION [None]
  - PROTEUS TEST POSITIVE [None]
